FAERS Safety Report 9478505 (Version 2)
Quarter: 2013Q3

REPORT INFORMATION
  Report Type: Report from Study
  Country: CA (occurrence: CA)
  Receive Date: 20130827
  Receipt Date: 20130906
  Transmission Date: 20140515
  Serious: Yes (Hospitalization)
  Sender: FDA-Public Use
  Company Number: CA-JNJFOC-20130809687

PATIENT
  Age: 68 Year
  Sex: Female
  Weight: 55.5 kg

DRUGS (9)
  1. REMICADE [Suspect]
     Indication: CROHN^S DISEASE
     Route: 042
     Dates: start: 20050330, end: 20130625
  2. FOSAMAX [Concomitant]
     Route: 065
  3. CALCIUM [Concomitant]
     Route: 065
  4. VITAMIN D [Concomitant]
     Route: 065
  5. PERCOCET [Concomitant]
     Dosage: 1-2 TABLETS
     Route: 065
  6. AZATHIOPRINE [Concomitant]
     Route: 065
  7. ASACOL [Concomitant]
     Route: 065
  8. LASIX [Concomitant]
     Route: 065
  9. SLOW K [Concomitant]
     Route: 065

REACTIONS (14)
  - Intestinal resection [Unknown]
  - Colectomy [Recovered/Resolved]
  - Abscess [Recovered/Resolved]
  - Abdominal distension [Recovered/Resolved]
  - Blood albumin decreased [Unknown]
  - Pyrexia [Recovered/Resolved]
  - Abdominal pain [Recovered/Resolved]
  - Nausea [Recovered/Resolved]
  - Vomiting [Recovered/Resolved]
  - Red blood cell count increased [Unknown]
  - Blood alkaline phosphatase increased [Unknown]
  - Blood bilirubin increased [Unknown]
  - Blood sodium decreased [Unknown]
  - Blood chloride decreased [Unknown]
